FAERS Safety Report 8492502-6 (Version None)
Quarter: 2012Q3

REPORT INFORMATION
  Report Type: 
  Country: None (occurrence: None)
  Receive Date: 20120706
  Receipt Date: 20120703
  Transmission Date: 20120928
  Serious: No
  Sender: FDA-Public Use
  Company Number: US-PFIZER INC-2012151066

PATIENT
  Sex: Male
  Weight: 81 kg

DRUGS (5)
  1. PROTONIX [Suspect]
     Indication: HYPERCHLORHYDRIA
     Dosage: 40 MG, 1X/DAY
     Route: 048
  2. LOVASTATIN [Concomitant]
     Dosage: 20 MG, 2X/DAY
  3. AVAPRO [Concomitant]
     Dosage: 300 MG, 1X/DAY
  4. METFORMIN [Concomitant]
     Indication: DIABETES MELLITUS
     Dosage: 850 MG, 2X/DAY
  5. ASPIRIN [Concomitant]
     Dosage: 81 MG, UNK

REACTIONS (3)
  - GASTROOESOPHAGEAL REFLUX DISEASE [None]
  - BLOOD GLUCOSE DECREASED [None]
  - BLOOD PRESSURE INCREASED [None]
